FAERS Safety Report 7830334-X (Version None)
Quarter: 2011Q4

REPORT INFORMATION
  Report Type: 
  Country: None (occurrence: None)
  Receive Date: 20111021
  Receipt Date: 20111017
  Transmission Date: 20120403
  Serious: Yes (Other)
  Sender: FDA-Public Use
  Company Number: CN-PFIZER INC-2010128298

PATIENT
  Age: 31 Year
  Sex: Female
  Weight: 53 kg

DRUGS (8)
  1. ROSUVASTATIN [Concomitant]
     Indication: PULMONARY ARTERIAL HYPERTENSION
     Dosage: 10 MG, 1X/DAY
     Route: 048
     Dates: start: 20091203
  2. DIGOXIN [Concomitant]
     Indication: PULMONARY ARTERIAL HYPERTENSION
     Dosage: 0.125 MG, 1X/DAY
     Route: 048
     Dates: start: 20091203
  3. SITAXENTAN [Suspect]
     Indication: PULMONARY ARTERIAL HYPERTENSION
     Dosage: UNK
     Route: 048
     Dates: start: 20100617, end: 20101102
  4. SILDENAFIL CITRATE [Suspect]
     Indication: PULMONARY ARTERIAL HYPERTENSION
     Dosage: 20 MG, 3X/DAY
     Route: 048
     Dates: start: 20100617, end: 20101102
  5. TORASEMIDE [Concomitant]
     Indication: PULMONARY ARTERIAL HYPERTENSION
     Dosage: 5 MG, ALTERNATE DAY
     Route: 048
     Dates: start: 20091203
  6. FUROSEMIDE [Concomitant]
     Indication: PULMONARY ARTERIAL HYPERTENSION
     Dosage: 20 MG, ALTERNATE DAY
     Route: 048
     Dates: start: 20091203
  7. POTASSIUM CHLORIDE [Concomitant]
     Indication: PULMONARY ARTERIAL HYPERTENSION
     Dosage: 1 G, 3X/DAY
     Route: 048
     Dates: start: 20091203
  8. OXYGEN [Concomitant]
     Indication: PULMONARY ARTERIAL HYPERTENSION
     Dosage: 2 L/MIN, 6 HOURS/DAY
     Route: 055
     Dates: start: 20091203

REACTIONS (1)
  - HEPATIC FUNCTION ABNORMAL [None]
